FAERS Safety Report 5972927-0 (Version None)
Quarter: 2008Q4

REPORT INFORMATION
  Report Type: 
  Country: None (occurrence: None)
  Receive Date: 20081126
  Receipt Date: 20081126
  Transmission Date: 20090506
  Serious: Yes (Hospitalization)
  Sender: FDA-Public Use
  Company Number: None

PATIENT
  Age: 79 Year
  Sex: Female
  Weight: 80 kg

DRUGS (3)
  1. WARFARIN SODIUM [Suspect]
     Indication: DEEP VEIN THROMBOSIS
     Dosage: 5MG DAILY PO  (THERAPY DATES: ^RECENT^ )
     Route: 048
  2. PLAVIX [Suspect]
     Indication: STENT PLACEMENT
     Dosage: 75 MG DAILY PO (DURATION: LONG TIME)
     Route: 048
  3. ASPIRIN [Suspect]
     Indication: STENT PLACEMENT
     Dosage: 325MG DAILY PO (DURATION: LONG TIME)
     Route: 048

REACTIONS (8)
  - ASTHENIA [None]
  - DIZZINESS [None]
  - DYSPNOEA [None]
  - FAECES DISCOLOURED [None]
  - HAEMATOCRIT DECREASED [None]
  - HAEMOGLOBIN DECREASED [None]
  - HYPOTENSION [None]
  - PALLOR [None]
